FAERS Safety Report 15439161 (Version 2)
Quarter: 2018Q4

REPORT INFORMATION
  Report Type: Report from Study
  Country: None (occurrence: US)
  Receive Date: 20180928
  Receipt Date: 20181019
  Transmission Date: 20190204
  Serious: Yes (Other)
  Sender: FDA-Public Use
  Company Number: US-ABBVIE-18K-163-2500916-00

PATIENT
  Age: 68 Year
  Sex: Female
  Weight: 53.57 kg

DRUGS (16)
  1. LOPID [Concomitant]
     Active Substance: GEMFIBROZIL
     Indication: BLOOD TRIGLYCERIDES
  2. ZYRTEC [Concomitant]
     Active Substance: CETIRIZINE HYDROCHLORIDE
     Indication: SINUS DISORDER
  3. CENTRUM SILVER [Concomitant]
     Active Substance: MINERALS\VITAMINS
     Indication: VITAMIN SUPPLEMENTATION
  4. VITAMIN B12 [Concomitant]
     Active Substance: CYANOCOBALAMIN
     Indication: VITAMIN SUPPLEMENTATION
  5. PRESERVISION AREDS [Concomitant]
     Active Substance: MINERALS\VITAMINS
     Indication: MACULAR DEGENERATION
  6. CALCIUM WITH VITAMIN D [Concomitant]
     Active Substance: CALCIUM\VITAMIN D
     Indication: MINERAL SUPPLEMENTATION
  7. CALCITRIOL. [Concomitant]
     Active Substance: CALCITRIOL
     Indication: MINERAL SUPPLEMENTATION
  8. AMLODIPINE [Concomitant]
     Active Substance: AMLODIPINE BESYLATE
     Indication: HYPERTENSION
  9. HUMIRA [Suspect]
     Active Substance: ADALIMUMAB
     Indication: CROHN^S DISEASE
     Route: 058
     Dates: start: 201105
  10. VITAMIN D [Concomitant]
     Active Substance: CHOLECALCIFEROL
     Indication: VITAMIN SUPPLEMENTATION
  11. FISH OIL [Concomitant]
     Active Substance: FISH OIL
     Indication: SUPPLEMENTATION THERAPY
  12. VITAMIN E [Concomitant]
     Active Substance: .ALPHA.-TOCOPHEROL
     Indication: VITAMIN SUPPLEMENTATION
  13. BONIVA [Concomitant]
     Active Substance: IBANDRONATE SODIUM
     Indication: BONE DISORDER
  14. ASPIRIN. [Concomitant]
     Active Substance: ASPIRIN
     Indication: CARDIOVASCULAR EVENT PROPHYLAXIS
  15. GINKGO BILOBA [Concomitant]
     Active Substance: GINKGO
     Indication: MEMORY IMPAIRMENT
  16. FLONASE [Concomitant]
     Active Substance: FLUTICASONE PROPIONATE
     Indication: SINUS DISORDER

REACTIONS (6)
  - Nephrolithiasis [Recovered/Resolved]
  - Blood urine present [Recovered/Resolved]
  - Urethral perforation [Recovered/Resolved]
  - Eye opacity [Recovered/Resolved]
  - Injection site pain [Not Recovered/Not Resolved]
  - Eye opacity [Recovered/Resolved]

NARRATIVE: CASE EVENT DATE: 2011
